FAERS Safety Report 22267549 (Version 1)
Quarter: 2023Q2

REPORT INFORMATION
  Report Type: Spontaneous
  Country: US (occurrence: US)
  Receive Date: 20230430
  Receipt Date: 20230430
  Transmission Date: 20230722
  Serious: Yes (Other)
  Sender: FDA-Public Use
  Company Number: US-STRIDES ARCOLAB LIMITED-2023SP006133

PATIENT
  Sex: Male

DRUGS (15)
  1. PREDNISOLONE [Suspect]
     Active Substance: PREDNISOLONE
     Indication: Product used for unknown indication
     Dosage: UNK (THE PATIENT^S MOTHER 15 MILLIGRAM PER DAY; ADMINISTERED UNDER A TAPERING SCHEDULE)
     Route: 064
  2. AZATHIOPRINE [Suspect]
     Active Substance: AZATHIOPRINE
     Indication: Product used for unknown indication
     Dosage: UNK (THE PATIENT MOTHER RECEIVED 1MILLIGRAM/KILOGRAM)
     Route: 064
  3. AZATHIOPRINE [Suspect]
     Active Substance: AZATHIOPRINE
     Dosage: UNK (THE PATIENT MOTHER RECEIVED 75 MILLIGRAM)
     Route: 064
  4. LAPINE T-LYMPHOCYTE IMMUNE GLOBULIN [Suspect]
     Active Substance: LAPINE T-LYMPHOCYTE IMMUNE GLOBULIN
     Indication: Product used for unknown indication
     Dosage: UNK (THE PATIENT^S MOTHER 4.5 MILLIGRAM/KILOGRAM; ADMINISTERED IN THREE DIVIDED DOSES; INDUCTION)
     Route: 064
  5. METHYLPREDNISOLONE [Suspect]
     Active Substance: METHYLPREDNISOLONE
     Indication: Product used for unknown indication
     Dosage: UNK (THE PATIENT^S MOTHER RECEIVED 1000 MILLIGRAM)
     Route: 064
  6. PROGRAF [Suspect]
     Active Substance: TACROLIMUS
     Indication: Product used for unknown indication
     Dosage: UNK (THE PATIENT^S MOTHER RECEIVED 0.5 MILLIGRAM/KILOGRAM, EVERY 12 HRS
     Route: 064
  7. PROGRAF [Suspect]
     Active Substance: TACROLIMUS
     Dosage: UNK (THE PATIENT^S RECEIVED WITH WITH A GOAL TROUGH LEVEL OF 5-8 NG/ML FOR THE FIRST 3 MONTHS AND 3-
     Route: 064
  8. PROGRAF [Suspect]
     Active Substance: TACROLIMUS
     Dosage: UNK (THE PATIENT^S MOTHER RECEIVED 0.5 MILLIGRAM/KILOGRAM, EVERY 12 HRS) (EXTENDED RELEASE)
     Route: 064
  9. PROGRAF [Suspect]
     Active Substance: TACROLIMUS
     Dosage: UNK (DOSE REDUCTION)
     Route: 064
  10. MYCOPHENOLIC ACID [Suspect]
     Active Substance: MYCOPHENOLIC ACID
     Indication: Product used for unknown indication
     Dosage: UNK
     Route: 064
  11. MYCOPHENOLIC ACID [Suspect]
     Active Substance: MYCOPHENOLIC ACID
     Dosage: UNK (THE PATIENT^S MOTHER RECEIVED WAS MAINTAINED ONLY ON MYCOPHENOLIC ACID)
     Route: 064
  12. ASPIRIN [Suspect]
     Active Substance: ASPIRIN
     Indication: Product used for unknown indication
     Dosage: UNK (THE PATIENT^S MOTHER RECEIVED 81 MILLIGRAM PER DAY)
     Route: 064
  13. VALGANCICLOVIR HYDROCHLORIDE [Suspect]
     Active Substance: VALGANCICLOVIR HYDROCHLORIDE
     Indication: Product used for unknown indication
     Dosage: UNK (THE PATIENT^S MOTHER RECEIVED 450 MG/DAILY )
     Route: 064
  14. VALGANCICLOVIR HYDROCHLORIDE [Suspect]
     Active Substance: VALGANCICLOVIR HYDROCHLORIDE
     Dosage: UNK (THE PATIENT^S MOTHER RECEIVED 450 MG, BID  )
     Route: 064
  15. GANCICLOVIR [Suspect]
     Active Substance: GANCICLOVIR
     Indication: Product used for unknown indication
     Dosage: UNK (THE PATIENT^S MOTHER RECEIVED 5MG/KG, EVERY 12 HRS- )
     Route: 064

REACTIONS (2)
  - Premature baby [Unknown]
  - Foetal exposure during pregnancy [Unknown]
